FAERS Safety Report 6224756-0 (Version None)
Quarter: 2009Q2

REPORT INFORMATION
  Report Type: 
  Country: None (occurrence: None)
  Receive Date: 20090612
  Receipt Date: 20090329
  Transmission Date: 20091009
  Serious: No
  Sender: FDA-Public Use
  Company Number: US-ABBOTT-09P-163-0565309-00

PATIENT
  Sex: Female
  Weight: 55.388 kg

DRUGS (1)
  1. HUMIRA [Suspect]
     Indication: RHEUMATOID ARTHRITIS
     Dates: start: 20081231

REACTIONS (2)
  - INJECTION SITE PRURITUS [None]
  - INJECTION SITE URTICARIA [None]
